FAERS Safety Report 21754656 (Version 5)
Quarter: 2024Q1

REPORT INFORMATION
  Report Type: Spontaneous
  Country: US (occurrence: US)
  Receive Date: 20221220
  Receipt Date: 20240117
  Transmission Date: 20240410
  Serious: No
  Sender: FDA-Public Use
  Company Number: US-PFIZER INC-202201379256

PATIENT
  Age: 67 Year
  Sex: Male

DRUGS (7)
  1. INLYTA [Suspect]
     Active Substance: AXITINIB
     Dosage: 5 MG, 2X/DAY
     Dates: start: 20221201
  2. INLYTA [Suspect]
     Active Substance: AXITINIB
     Dosage: TAKE 1 TABLET BY MOUTH IN THE MORNING AND AT BEDTIME TAKE IN ADDITION TO 2 MG FOR A TOTAL DOSE OF 7
     Route: 048
  3. ATORVASTATIN CALCIUM [Concomitant]
     Active Substance: ATORVASTATIN CALCIUM
     Dosage: UNK
  4. KEYTRUDA [Concomitant]
     Active Substance: PEMBROLIZUMAB
     Dosage: 100 MG/4ML VIAL
  5. FLUOXETINE HYDROCHLORIDE [Concomitant]
     Active Substance: FLUOXETINE HYDROCHLORIDE
     Dosage: UNK
  6. METFORMIN HYDROCHLORIDE [Concomitant]
     Active Substance: METFORMIN HYDROCHLORIDE
     Dosage: UNK
  7. PIOGLITAZONE [Concomitant]
     Active Substance: PIOGLITAZONE
     Dosage: UNK

REACTIONS (3)
  - Blood pressure increased [Recovering/Resolving]
  - Fatigue [Unknown]
  - Night sweats [Unknown]
